FAERS Safety Report 20207371 (Version 2)
Quarter: 2022Q1

REPORT INFORMATION
  Report Type: Spontaneous
  Country: IN (occurrence: IN)
  Receive Date: 20211220
  Receipt Date: 20220225
  Transmission Date: 20220423
  Serious: Yes (Hospitalization, Other)
  Sender: FDA-Public Use
  Company Number: IN-PFIZER INC-2018136241

PATIENT
  Age: 67 Year
  Sex: Male
  Weight: 68 kg

DRUGS (7)
  1. SUTENT [Suspect]
     Active Substance: SUNITINIB MALATE
     Indication: Metastatic renal cell carcinoma
     Dosage: 50 MG, CYCLIC (ONCE A DAY, 10DAYS ON AND 7 DAYS OFF)
     Route: 048
     Dates: start: 20170222
  2. SUTENT [Suspect]
     Active Substance: SUNITINIB MALATE
     Dosage: 37.5 MG
     Route: 048
     Dates: start: 201702
  3. SUTENT [Suspect]
     Active Substance: SUNITINIB MALATE
     Dosage: 37.5 MG, CYCLIC (7 DAYS ON 7 DAYS OFF-6 MONTHS)
  4. PYRIDOXINE HYDROCHLORIDE [Concomitant]
     Active Substance: PYRIDOXINE HYDROCHLORIDE
     Dosage: UNK, 2X/DAY (6 MONTHS)
  5. PYRIDOXINE HYDROCHLORIDE [Concomitant]
     Active Substance: PYRIDOXINE HYDROCHLORIDE
     Dosage: 1-0-0 X 6 MTH
  6. COTARYL [Concomitant]
     Dosage: UNK
  7. COTARYL [Concomitant]
     Dosage: 0-0-1 X 6 MTH

REACTIONS (5)
  - COVID-19 [Unknown]
  - Blood pressure systolic increased [Unknown]
  - Drug hypersensitivity [Unknown]
  - Arthropathy [Unknown]
  - Respiratory disorder [Unknown]
